FAERS Safety Report 21141485 (Version 3)
Quarter: 2022Q4

REPORT INFORMATION
  Report Type: Report from Study
  Country: US (occurrence: US)
  Receive Date: 20220728
  Receipt Date: 20221025
  Transmission Date: 20230112
  Serious: Yes (Other)
  Sender: FDA-Public Use
  Company Number: US-BAYER-2022A079801

PATIENT
  Age: 71 Year
  Sex: Female
  Weight: 43.537 kg

DRUGS (38)
  1. STIVARGA [Suspect]
     Active Substance: REGORAFENIB
     Indication: Gastrointestinal stromal tumour
     Dosage: 160 MG, QD
     Dates: start: 20220504, end: 20220523
  2. STIVARGA [Suspect]
     Active Substance: REGORAFENIB
     Indication: Gastrointestinal stromal tumour
     Dosage: UNK
  3. ASPIRIN [Concomitant]
     Active Substance: ASPIRIN
     Dosage: 1 DAILY
     Route: 048
     Dates: start: 20210814
  4. ATORVASTATIN [Concomitant]
     Active Substance: ATORVASTATIN
     Dosage: 1 DAILY AT BEDTIME (HS)
     Route: 048
     Dates: start: 20210814
  5. BUSPIRONE [Concomitant]
     Active Substance: BUSPIRONE HYDROCHLORIDE
     Indication: Affective disorder
     Dosage: 1.5 THREE TIME A DAY (TDS)
     Route: 048
     Dates: start: 20220406
  6. BUSPIRONE [Concomitant]
     Active Substance: BUSPIRONE HYDROCHLORIDE
     Indication: Anxiety
     Dosage: 1 THREE TIME A DAY
     Route: 048
     Dates: start: 20220504
  7. CYCLOBENZAPRINE [Concomitant]
     Active Substance: CYCLOBENZAPRINE
     Dosage: TWICE A DAY
     Route: 048
     Dates: start: 20210814
  8. DIAZEPAM [Concomitant]
     Active Substance: DIAZEPAM
     Indication: Osteoarthritis
     Dosage: 1 TWICE A DAY
     Route: 048
     Dates: start: 20210814
  9. DICLOFENAC SODIUM [Concomitant]
     Active Substance: DICLOFENAC SODIUM
     Dosage: 1 TWICE A DAY
     Route: 048
     Dates: start: 20210814
  10. ESCITALOPRAM [Concomitant]
     Active Substance: ESCITALOPRAM OXALATE
     Dosage: 1 DAILY AT BEDTIME
     Route: 048
     Dates: start: 20190816
  11. HYDROCODONE [Concomitant]
     Active Substance: HYDROCODONE
     Indication: Pain
     Dosage: 4 TO 6 HOURS PRN PAIN
     Route: 048
     Dates: start: 20220504
  12. HYDROCODONE [Concomitant]
     Active Substance: HYDROCODONE
     Indication: Pain
     Dosage: 4 TO 6 HOURS PRN PAIN
  13. ACETAMINOPHEN [Concomitant]
     Active Substance: ACETAMINOPHEN
     Dosage: 1 4 TO 6 HOURS PRN PAIN
     Route: 048
     Dates: start: 20220504
  14. HYDROXYCHLOROQUINE [Concomitant]
     Active Substance: HYDROXYCHLOROQUINE
     Dosage: 1 DAILY PRN
     Route: 048
     Dates: start: 20220406
  15. LEVOTHYROXINE [Concomitant]
     Active Substance: LEVOTHYROXINE
     Indication: Anxiety
     Dosage: 1 DAILY IN THE MORNING
     Dates: start: 20220406
  16. LORAZEPAM [Concomitant]
     Active Substance: LORAZEPAM
     Indication: Anxiety
     Dosage: 1 THREE TIME A DAY
     Route: 048
     Dates: start: 20220604
  17. NIFEDIPINE [Concomitant]
     Active Substance: NIFEDIPINE
     Dosage: 1 DAILY
     Route: 048
     Dates: start: 20210816
  18. PLAVIX [Concomitant]
     Active Substance: CLOPIDOGREL BISULFATE
     Dosage: 1 DAILY
     Route: 048
     Dates: start: 20210814
  19. POTASSIUM CHLORIDE [Concomitant]
     Active Substance: POTASSIUM CHLORIDE
     Dosage: 1 DAILY
     Route: 048
     Dates: start: 20210814
  20. SENNOSIDES [Concomitant]
     Active Substance: SENNOSIDES
     Indication: Constipation
     Dosage: 2 AT BED TIME
     Route: 048
     Dates: start: 20210814
  21. DOCUSATE SODIUM [Concomitant]
     Active Substance: DOCUSATE SODIUM
     Dosage: 2 AT BEDTIME
     Route: 048
     Dates: start: 20210814
  22. SERTRALINE [Concomitant]
     Active Substance: SERTRALINE HYDROCHLORIDE
     Dosage: 1 DAILY
     Route: 048
     Dates: start: 20210816
  23. ZOLPIDEM [Concomitant]
     Active Substance: ZOLPIDEM TARTRATE
     Dosage: 1 DAILY AT BEDTIME
     Route: 048
     Dates: start: 20220406
  24. GLIVEC [Concomitant]
     Active Substance: IMATINIB MESYLATE
     Dosage: UNK
  25. SUTENT [Concomitant]
     Active Substance: SUNITINIB MALATE
     Indication: Diarrhoea
  26. SUTENT [Concomitant]
     Active Substance: SUNITINIB MALATE
     Indication: Pain in extremity
  27. RECLAST [Concomitant]
     Active Substance: ZOLEDRONIC ACID
     Indication: Osteoporosis
  28. FOSAMAX [Concomitant]
     Active Substance: ALENDRONATE SODIUM
     Indication: Gastrointestinal disorder
  29. LEXAPRO [Concomitant]
     Active Substance: ESCITALOPRAM OXALATE
     Indication: Depression
     Dosage: DAILY
  30. VALIUM [Concomitant]
     Active Substance: DIAZEPAM
     Indication: Depression
     Dosage: BID
  31. VITAMIN D NOS [Concomitant]
     Active Substance: VITAMIN D NOS
     Indication: Osteoporosis
     Dosage: WEEKLY
  32. TASIGNA [Concomitant]
     Active Substance: NILOTINIB
     Dosage: 300 MG, BID
  33. AMBIEN [Concomitant]
     Active Substance: ZOLPIDEM TARTRATE
     Indication: Somnolence
     Dosage: AT BEDTIME
  34. MIRALAX [Concomitant]
     Active Substance: POLYETHYLENE GLYCOL 3350
     Indication: Constipation
  35. RIPRETINIB [Concomitant]
     Active Substance: RIPRETINIB
     Indication: Gastrointestinal stromal tumour
     Dosage: 150 MG, QD
     Dates: start: 20220609
  36. RIPRETINIB [Concomitant]
     Active Substance: RIPRETINIB
     Indication: Gastrointestinal stromal tumour
     Dosage: 100 UNK (2 TABLETS )
  37. PANTOPRAZOLE [Concomitant]
     Active Substance: PANTOPRAZOLE
     Dosage: 1 TWICE A DAY
     Route: 048
     Dates: start: 20210814
  38. QINLOCK [Concomitant]
     Active Substance: RIPRETINIB
     Dosage: UNK

REACTIONS (20)
  - Oropharyngeal blistering [Recovered/Resolved]
  - White blood cell count decreased [Recovered/Resolved]
  - Rash [Recovered/Resolved]
  - Urinary tract infection [Recovered/Resolved]
  - Dermatitis allergic [Recovered/Resolved]
  - Oral mucosal blistering [Recovered/Resolved]
  - Thermal burn [Recovered/Resolved]
  - Dehydration [Recovered/Resolved]
  - Skin exfoliation [Recovered/Resolved]
  - Confusional state [Recovered/Resolved]
  - Diarrhoea [Recovered/Resolved]
  - Abdominal pain [Recovered/Resolved]
  - Anxiety [Recovered/Resolved]
  - Blister [Recovered/Resolved]
  - Tenderness [None]
  - Dysphagia [None]
  - Weight increased [None]
  - Stomatitis [None]
  - Fatigue [None]
  - Drug intolerance [None]

NARRATIVE: CASE EVENT DATE: 20220505
